FAERS Safety Report 8596216-3 (Version None)
Quarter: 2012Q3

REPORT INFORMATION
  Report Type: 
  Country: None (occurrence: None)
  Receive Date: 20120815
  Receipt Date: 20120808
  Transmission Date: 20120928
  Serious: Yes (Other)
  Sender: FDA-Public Use
  Company Number: TT-GLAXOSMITHKLINE-B0821773A

PATIENT
  Sex: Male

DRUGS (1)
  1. BETNOVATE [Suspect]
     Indication: PSORIASIS
     Route: 061

REACTIONS (4)
  - GLAUCOMA [None]
  - BLINDNESS [None]
  - CATARACT OPERATION [None]
  - CATARACT [None]
